FAERS Safety Report 21078439 (Version 1)
Quarter: 2022Q3

REPORT INFORMATION
  Report Type: Spontaneous
  Country: FR (occurrence: FR)
  Receive Date: 20220713
  Receipt Date: 20220713
  Transmission Date: 20221027
  Serious: Yes (Other)
  Sender: FDA-Public Use
  Company Number: FR-SA-2019SA309654

PATIENT
  Age: 72 Year
  Sex: Male
  Weight: 95 kg

DRUGS (1)
  1. DILTIAZEM [Suspect]
     Active Substance: DILTIAZEM
     Indication: Hypertension
     Route: 048

REACTIONS (4)
  - Chronic myelomonocytic leukaemia [Unknown]
  - Platelet disorder [Not Recovered/Not Resolved]
  - Spontaneous haematoma [Unknown]
  - Platelet aggregation abnormal [Not Recovered/Not Resolved]

NARRATIVE: CASE EVENT DATE: 20191101
